FAERS Safety Report 6957438-8 (Version None)
Quarter: 2010Q3

REPORT INFORMATION
  Report Type: 
  Country: None (occurrence: None)
  Receive Date: 20100831
  Receipt Date: 20100820
  Transmission Date: 20110219
  Serious: Yes (Other)
  Sender: FDA-Public Use
  Company Number: BR-TYCO HEALTHCARE/MALLINCKRODT-T201001850

PATIENT
  Age: 50 Year
  Sex: Male

DRUGS (4)
  1. EXALGO [Suspect]
     Indication: PAIN
     Dosage: 8 MG, UNK
     Dates: start: 20100701
  2. TRAMADOL HCL [Suspect]
     Dosage: UNK
  3. CYMBALTA [Concomitant]
     Indication: DEPRESSION
     Dosage: UNK
  4. GABAPENTIN [Concomitant]
     Dosage: UNK

REACTIONS (3)
  - HYPERHIDROSIS [None]
  - SEROTONIN SYNDROME [None]
  - TACHYCARDIA [None]
